FAERS Safety Report 25239077 (Version 4)
Quarter: 2025Q3

REPORT INFORMATION
  Report Type: Spontaneous
  Country: US (occurrence: US)
  Receive Date: 20250425
  Receipt Date: 20250801
  Transmission Date: 20251020
  Serious: Yes (Hospitalization, Other)
  Sender: BRISTOL-MYERS SQUIBB COMPANY
  Company Number: US-BRISTOL-MYERS SQUIBB COMPANY-2025-060804

PATIENT
  Age: 56 Year
  Sex: Female

DRUGS (3)
  1. REVLIMID [Suspect]
     Active Substance: LENALIDOMIDE
     Indication: Plasma cell myeloma
     Dosage: DAILY FOR 21 DAYS ON 7 DAYS OFF
     Route: 048
  2. REVLIMID [Suspect]
     Active Substance: LENALIDOMIDE
     Dosage: DAILY FOR 14 DAYS, THEN 7 DAYS OFF
     Route: 048
  3. REVLIMID [Suspect]
     Active Substance: LENALIDOMIDE
     Route: 048

REACTIONS (13)
  - Pain [Unknown]
  - Musculoskeletal discomfort [Unknown]
  - Eye swelling [Unknown]
  - Hypoaesthesia [Unknown]
  - Peripheral swelling [Unknown]
  - Neuropathy peripheral [Unknown]
  - Migraine [Unknown]
  - Red blood cell count decreased [Unknown]
  - Gait disturbance [Unknown]
  - Hepatic enzyme increased [Unknown]
  - Product dose omission issue [Unknown]
  - Chest pain [Unknown]
  - Dyspnoea [Unknown]
